FAERS Safety Report 11380633 (Version 2)
Quarter: 2016Q3

REPORT INFORMATION
  Report Type: Spontaneous
  Country: US (occurrence: US)
  Receive Date: 20150814
  Receipt Date: 20160804
  Transmission Date: 20161109
  Serious: Yes (Hospitalization)
  Sender: FDA-Public Use
  Company Number: US-JNJFOC-20150801011

PATIENT
  Age: 30 Year
  Sex: Female
  Weight: 81.65 kg

DRUGS (13)
  1. LEVAQUIN [Suspect]
     Active Substance: LEVOFLOXACIN
     Indication: AUTOIMMUNE THYROIDITIS
     Route: 048
     Dates: start: 20111223, end: 20111229
  2. LEVAQUIN [Suspect]
     Active Substance: LEVOFLOXACIN
     Indication: AUTOIMMUNE THYROIDITIS
     Route: 048
     Dates: start: 20081202, end: 20081203
  3. LEVAQUIN [Suspect]
     Active Substance: LEVOFLOXACIN
     Indication: PNEUMONIA
     Route: 048
     Dates: start: 20070328, end: 20070406
  4. LEVAQUIN [Suspect]
     Active Substance: LEVOFLOXACIN
     Indication: PNEUMONIA
     Route: 048
     Dates: start: 20111223, end: 20111229
  5. LEVAQUIN [Suspect]
     Active Substance: LEVOFLOXACIN
     Indication: UPPER RESPIRATORY TRACT INFECTION
     Route: 048
     Dates: start: 20081202, end: 20081203
  6. LEVAQUIN [Suspect]
     Active Substance: LEVOFLOXACIN
     Indication: AUTOIMMUNE THYROIDITIS
     Route: 048
     Dates: start: 20070328, end: 20070406
  7. LEVAQUIN [Suspect]
     Active Substance: LEVOFLOXACIN
     Indication: PNEUMONIA
     Route: 048
     Dates: start: 20120429, end: 20120505
  8. LEVAQUIN [Suspect]
     Active Substance: LEVOFLOXACIN
     Indication: UPPER RESPIRATORY TRACT INFECTION
     Route: 048
     Dates: start: 20120429, end: 20120505
  9. LEVAQUIN [Suspect]
     Active Substance: LEVOFLOXACIN
     Indication: UPPER RESPIRATORY TRACT INFECTION
     Route: 048
     Dates: start: 20111223, end: 20111229
  10. LEVAQUIN [Suspect]
     Active Substance: LEVOFLOXACIN
     Indication: UPPER RESPIRATORY TRACT INFECTION
     Route: 048
     Dates: start: 20070328, end: 20070406
  11. AMOXIL [Concomitant]
     Active Substance: AMOXICILLIN
     Indication: PRODUCT USED FOR UNKNOWN INDICATION
     Route: 065
  12. LEVAQUIN [Suspect]
     Active Substance: LEVOFLOXACIN
     Indication: PNEUMONIA
     Route: 048
     Dates: start: 20081202, end: 20081203
  13. LEVAQUIN [Suspect]
     Active Substance: LEVOFLOXACIN
     Indication: AUTOIMMUNE THYROIDITIS
     Route: 048
     Dates: start: 20120429, end: 20120505

REACTIONS (3)
  - Mental disorder [Not Recovered/Not Resolved]
  - Musculoskeletal injury [Not Recovered/Not Resolved]
  - Neuropathy peripheral [Not Recovered/Not Resolved]

NARRATIVE: CASE EVENT DATE: 200901
